FAERS Safety Report 4525280-3 (Version None)
Quarter: 2004Q4

REPORT INFORMATION
  Report Type: 
  Country: None (occurrence: None)
  Receive Date: 20041213
  Receipt Date: 20040922
  Transmission Date: 20050328
  Serious: Yes (Life-Threatening)
  Sender: FDA-Public Use
  Company Number: JP-ROCHE-381266

PATIENT
  Age: 73 Year
  Sex: Female

DRUGS (4)
  1. ROCEPHIN [Suspect]
     Route: 042
     Dates: start: 20040723, end: 20040728
  2. CHINESE HERBAL MEDICINE [Suspect]
     Dosage: DRUG NAME REPORTED AS SYOUSAIKOTOU.
     Route: 048
     Dates: start: 20040521, end: 20040710
  3. CHINESE HERBAL MEDICINE [Suspect]
     Route: 048
     Dates: start: 20040723, end: 20040801
  4. URSO 250 [Suspect]
     Route: 048
     Dates: start: 20040117, end: 20040801

REACTIONS (2)
  - INTERSTITIAL LUNG DISEASE [None]
  - LYMPHOCYTE STIMULATION TEST POSITIVE [None]
